FAERS Safety Report 7629834-7 (Version None)
Quarter: 2011Q3

REPORT INFORMATION
  Report Type: 
  Country: None (occurrence: None)
  Receive Date: 20110722
  Receipt Date: 20110717
  Transmission Date: 20111222
  Serious: Yes (Other)
  Sender: FDA-Public Use
  Company Number: DE-GENZYME-FLUD-1001226

PATIENT
  Age: 14 Year
  Sex: Female

DRUGS (11)
  1. ANTI-THYMOCYTE GLOBULIN NOS [Suspect]
     Indication: INTERFERON GAMMA RECEPTOR DEFICIENCY
  2. CYCLOSPORINE [Concomitant]
     Indication: PROPHYLAXIS AGAINST GRAFT VERSUS HOST DISEASE
     Dosage: UNK
     Route: 065
  3. MELPHALAN HYDROCHLORIDE [Suspect]
     Indication: INTERFERON GAMMA RECEPTOR DEFICIENCY
  4. ANTI-THYMOCYTE GLOBULIN NOS [Suspect]
     Indication: STEM CELL TRANSPLANT
     Dosage: UNK
     Route: 065
  5. INDIUM IN 111 CHLORIDE [Suspect]
     Indication: STEM CELL TRANSPLANT
     Dosage: 71 +/- 28 MBQ
     Route: 042
  6. FLUDARA [Suspect]
     Indication: INTERFERON GAMMA RECEPTOR DEFICIENCY
  7. YTTRIUM (90 Y) [Suspect]
     Indication: STEM CELL TRANSPLANT
     Dosage: UNK
     Route: 042
  8. YTTRIUM (90 Y) [Suspect]
     Indication: INTERFERON GAMMA RECEPTOR DEFICIENCY
  9. FLUDARA [Suspect]
     Indication: STEM CELL TRANSPLANT
     Dosage: 160 MG/M2, UNK
     Route: 065
  10. INDIUM IN 111 CHLORIDE [Suspect]
     Indication: INTERFERON GAMMA RECEPTOR DEFICIENCY
  11. MELPHALAN HYDROCHLORIDE [Suspect]
     Indication: STEM CELL TRANSPLANT
     Dosage: 70 MG/M2, UNK
     Route: 065

REACTIONS (2)
  - ADENOVIRUS INFECTION [None]
  - CHRONIC GRAFT VERSUS HOST DISEASE [None]
